FAERS Safety Report 5603806-6 (Version None)
Quarter: 2008Q1

REPORT INFORMATION
  Report Type: 
  Country: None (occurrence: None)
  Receive Date: 20080122
  Receipt Date: 20080109
  Transmission Date: 20080703
  Serious: Yes (Hospitalization)
  Sender: FDA-Public Use
  Company Number: 20074012

PATIENT
  Age: 43 Year
  Sex: Female

DRUGS (1)
  1. LIORESAL [Suspect]
     Indication: MUSCLE SPASTICITY
     Dosage: 783 MCG, DAILY, INTRATHECAL
     Route: 037

REACTIONS (6)
  - BACK PAIN [None]
  - DRUG EFFECT DECREASED [None]
  - DRUG WITHDRAWAL SYNDROME [None]
  - HYPOTONIA [None]
  - MUSCLE SPASTICITY [None]
  - OVERDOSE [None]
